FAERS Safety Report 13860029 (Version 2)
Quarter: 2017Q3

REPORT INFORMATION
  Report Type: Spontaneous
  Country: FR (occurrence: FR)
  Receive Date: 20170811
  Receipt Date: 20170822
  Transmission Date: 20171127
  Serious: Yes (Hospitalization)
  Sender: FDA-Public Use
  Company Number: FR-ROCHE-1972972

PATIENT
  Age: 52 Year
  Sex: Male

DRUGS (17)
  1. PERFALGAN [Suspect]
     Active Substance: ACETAMINOPHEN
     Indication: PRODUCT USED FOR UNKNOWN INDICATION
     Route: 041
     Dates: start: 20170711, end: 20170711
  2. KARDEGIC [Concomitant]
     Active Substance: ASPIRIN LYSINE
     Route: 065
  3. PERINDOPRIL [Concomitant]
     Active Substance: PERINDOPRIL
     Route: 065
  4. RIVOTRIL [Suspect]
     Active Substance: CLONAZEPAM
     Indication: STATUS EPILEPTICUS
     Route: 042
     Dates: start: 20170711, end: 20170711
  5. BRILIQUE [Concomitant]
     Active Substance: TICAGRELOR
     Route: 065
  6. BISOCE [Concomitant]
     Active Substance: BISOPROLOL
     Route: 065
  7. TAHOR [Concomitant]
     Active Substance: ATORVASTATIN CALCIUM
     Route: 065
     Dates: end: 20170714
  8. KEPPRA [Concomitant]
     Active Substance: LEVETIRACETAM
     Route: 065
  9. LOVENOX [Concomitant]
     Active Substance: ENOXAPARIN SODIUM
  10. VITAMIN B6 [Concomitant]
     Active Substance: PYRIDOXINE HYDROCHLORIDE
  11. LANZOR [Concomitant]
     Active Substance: LANSOPRAZOLE
     Route: 065
  12. VALIUM [Concomitant]
     Active Substance: DIAZEPAM
  13. ATARAX [Concomitant]
     Active Substance: HYDROXYZINE HYDROCHLORIDE
     Route: 065
  14. VITAMIN B1 [Concomitant]
     Active Substance: THIAMINE HYDROCHLORIDE
     Route: 065
  15. PRODILANTIN [Suspect]
     Active Substance: FOSPHENYTOIN SODIUM
     Indication: STATUS EPILEPTICUS
     Route: 042
     Dates: start: 20170711, end: 20170711
  16. GARDENAL [Suspect]
     Active Substance: PHENOBARBITAL
     Indication: STATUS EPILEPTICUS
     Route: 042
     Dates: start: 20170711, end: 20170711
  17. RAMIPRIL. [Concomitant]
     Active Substance: RAMIPRIL

REACTIONS (1)
  - Hepatocellular injury [Recovering/Resolving]

NARRATIVE: CASE EVENT DATE: 20170711
